FAERS Safety Report 14092480 (Version 1)
Quarter: 2017Q4

REPORT INFORMATION
  Report Type: Spontaneous
  Country: US (occurrence: None)
  Receive Date: 20171016
  Receipt Date: 20171016
  Transmission Date: 20180321
  Serious: Yes (Hospitalization)
  Sender: FDA-Public Use
  Company Number: None

PATIENT
  Age: 85 Year
  Sex: Male

DRUGS (7)
  1. JADENU [Suspect]
     Active Substance: DEFERASIROX
     Route: 048
     Dates: start: 20151201
  2. ATORVASTATIN [Concomitant]
     Active Substance: ATORVASTATIN
  3. BUMETADINE [Concomitant]
     Active Substance: BUMETANIDE
  4. ASPIRIN. [Concomitant]
     Active Substance: ASPIRIN
  5. PROMACTA [Concomitant]
     Active Substance: ELTROMBOPAG OLAMINE
  6. CLOPIDOGREL [Concomitant]
     Active Substance: CLOPIDOGREL BISULFATE
  7. AMLODIPINE [Concomitant]
     Active Substance: AMLODIPINE BESYLATE

REACTIONS (2)
  - Cardiac failure congestive [None]
  - Drug dose omission [None]

NARRATIVE: CASE EVENT DATE: 20171012
